FAERS Safety Report 9456217 (Version 1)
Quarter: 2013Q3

REPORT INFORMATION
  Report Type: Spontaneous
  Country: JP (occurrence: None)
  Receive Date: 20130808
  Receipt Date: 20130808
  Transmission Date: 20140515
  Serious: No
  Sender: FDA-Public Use
  Company Number: TCI2013A04707

PATIENT
  Age: 64 Year
  Sex: Male

DRUGS (2)
  1. METACT COMBINATION TABLETS LD (PIOGLITAZONE HYDROCHLORIDE, METFORMIN HYDROCHLORIDE) [Suspect]
     Indication: TYPE 2 DIABETES MELLITUS
     Dosage: 1 TAB ( 1 TAB 1 IN 1 D
     Route: 048
     Dates: start: 20120210
  2. AMLODIN (AMLODIPINE BESILATE) [Concomitant]

REACTIONS (1)
  - Thyroid cancer [None]
